FAERS Safety Report 18565210 (Version 1)
Quarter: 2020Q4

REPORT INFORMATION
  Report Type: Spontaneous
  Country: SE (occurrence: SE)
  Receive Date: 20201201
  Receipt Date: 20201201
  Transmission Date: 20210114
  Serious: Yes (Life-Threatening)
  Sender: FDA-Public Use
  Company Number: SE-BAYER-2020-250604

PATIENT
  Age: 15 Year
  Sex: Female
  Weight: 60 kg

DRUGS (1)
  1. NEOVLETTA [Suspect]
     Active Substance: ETHINYL ESTRADIOL\LEVONORGESTREL
     Indication: CONTRACEPTION
     Dosage: 1 DF, QD
     Dates: start: 2009, end: 2016

REACTIONS (3)
  - Hemiplegia [Recovered/Resolved]
  - Migraine with aura [Recovered/Resolved]
  - Cerebrovascular accident [Recovered/Resolved]

NARRATIVE: CASE EVENT DATE: 2009
